FAERS Safety Report 6372587-3 (Version None)
Quarter: 2009Q3

REPORT INFORMATION
  Report Type: 
  Country: None (occurrence: None)
  Receive Date: 20090924
  Receipt Date: 20080929
  Transmission Date: 20100115
  Serious: No
  Sender: FDA-Public Use
  Company Number: US-ASTRAZENECA-2008UW20701

PATIENT
  Sex: Female

DRUGS (2)
  1. SEROQUEL [Suspect]
     Indication: BIPOLAR DISORDER
     Dosage: 300-400 MG
     Route: 048
  2. SEROQUEL [Suspect]
     Route: 048

REACTIONS (2)
  - BIPOLAR DISORDER [None]
  - DRUG EXPOSURE DURING PREGNANCY [None]
